FAERS Safety Report 10768365 (Version 2)
Quarter: 2015Q1

REPORT INFORMATION
  Report Type: Spontaneous
  Country: US (occurrence: US)
  Receive Date: 20150206
  Receipt Date: 20150330
  Transmission Date: 20150721
  Serious: Yes (Other)
  Sender: FDA-Public Use
  Company Number: US-ROCHE-1529362

PATIENT
  Age: 11 Year
  Sex: Male

DRUGS (1)
  1. TAMIFLU [Suspect]
     Active Substance: OSELTAMIVIR PHOSPHATE
     Indication: INFLUENZA
     Dosage: 12.5 ML TWICE A DAY FOR 5 DAYS?LAST DOSE ADMINISTERED ON 25/JAN/2015
     Route: 048
     Dates: start: 20150121

REACTIONS (9)
  - Cold sweat [Unknown]
  - Somnambulism [Unknown]
  - Movement disorder [Unknown]
  - Screaming [Unknown]
  - Sleep terror [Unknown]
  - Crying [Unknown]
  - Hallucination [Unknown]
  - Tremor [Unknown]
  - Night sweats [Unknown]
